FAERS Safety Report 5675708-0 (Version None)
Quarter: 2008Q1

REPORT INFORMATION
  Report Type: 
  Country: None (occurrence: None)
  Receive Date: 20080321
  Receipt Date: 20080314
  Transmission Date: 20080703
  Serious: Yes (Life-Threatening, Hospitalization, Other)
  Sender: FDA-Public Use
  Company Number: PHRM2008FR01052

PATIENT
  Age: 66 Year
  Sex: Male

DRUGS (7)
  1. NEORAL [Suspect]
     Indication: LIVER AND SMALL INTESTINE TRANSPLANT
     Dosage: 250 MG, BID
     Route: 048
     Dates: start: 20071201
  2. CELLCEPT [Suspect]
     Indication: LIVER AND SMALL INTESTINE TRANSPLANT
     Dosage: 1.5 G, BID
     Route: 048
     Dates: start: 20071201, end: 20080201
  3. CORTANCYL [Suspect]
     Indication: LIVER AND SMALL INTESTINE TRANSPLANT
     Dosage: 15 MG, QD
     Route: 048
     Dates: start: 20071201
  4. ROVALCYTE [Suspect]
     Dosage: 450 MG, BID
     Route: 048
  5. ESOMEPRAZOLE MAGNESIUM [Suspect]
     Dosage: 20 MG, QD
     Route: 048
  6. TEMESTA [Concomitant]
  7. ASPEGIC 325 [Concomitant]

REACTIONS (5)
  - AGRANULOCYTOSIS [None]
  - HEPATIC INFECTION [None]
  - LIVER ABSCESS [None]
  - NEUTROPENIA [None]
  - PYREXIA [None]
